FAERS Safety Report 21985360 (Version 1)
Quarter: 2023Q1

REPORT INFORMATION
  Report Type: Report from Study
  Country: US (occurrence: US)
  Receive Date: 20230213
  Receipt Date: 20230213
  Transmission Date: 20230417
  Serious: No
  Sender: FDA-Public Use
  Company Number: US-AGIOS-2302US03251

PATIENT
  Sex: Male

DRUGS (2)
  1. MITAPIVAT [Suspect]
     Active Substance: MITAPIVAT
     Indication: Pyruvate kinase deficiency anaemia
     Dosage: 50 MG
     Route: 048
     Dates: start: 20220923
  2. MITAPIVAT [Suspect]
     Active Substance: MITAPIVAT
     Dosage: FIVE 20 MG PILLS
     Route: 048

REACTIONS (1)
  - Product distribution issue [Unknown]
